FAERS Safety Report 10151249 (Version 1)
Quarter: 2014Q2

REPORT INFORMATION
  Report Type: Spontaneous
  Country: US (occurrence: US)
  Receive Date: 20140502
  Receipt Date: 20140502
  Transmission Date: 20141212
  Serious: No
  Sender: FDA-Public Use
  Company Number: US-ASTRAZENECA-2013SE88470

PATIENT
  Age: 67 Year
  Sex: Female

DRUGS (3)
  1. PRILOSEC OTC [Suspect]
     Indication: GASTROOESOPHAGEAL REFLUX DISEASE
     Dosage: TOOK EXTRA PRILOSEC OTC
     Route: 048
     Dates: start: 20131128
  2. PRILOSEC OTC [Suspect]
     Indication: GASTROOESOPHAGEAL REFLUX DISEASE
     Route: 048
  3. NEXIUM [Concomitant]
     Dosage: UNKNOWN
     Dates: start: 20131128, end: 20131128

REACTIONS (4)
  - Nausea [Not Recovered/Not Resolved]
  - Extra dose administered [Unknown]
  - Off label use [Unknown]
  - Intentional product misuse [Unknown]
